FAERS Safety Report 5896562-8 (Version None)
Quarter: 2008Q3

REPORT INFORMATION
  Report Type: 
  Country: None (occurrence: None)
  Receive Date: 20080924
  Receipt Date: 20070830
  Transmission Date: 20090109
  Serious: Yes (Other)
  Sender: FDA-Public Use
  Company Number: US-BAYER-200712722BWH

PATIENT
  Age: 66 Year
  Sex: Female

DRUGS (7)
  1. AVELOX [Suspect]
     Indication: SINUSITIS
     Dosage: TOTAL DAILY DOSE: 400 MG  UNIT DOSE: 400 MG
     Route: 048
     Dates: start: 20070808, end: 20070808
  2. SINGULAIR [Concomitant]
  3. ALLEGRA [Concomitant]
  4. PREVACID [Concomitant]
  5. LEXAPRO [Concomitant]
  6. ADVAIR DISKUS 100/50 [Concomitant]
  7. AMARYL [Concomitant]

REACTIONS (1)
  - ANAPHYLACTIC REACTION [None]
